FAERS Safety Report 13653421 (Version 1)
Quarter: 2017Q2

REPORT INFORMATION
  Report Type: Spontaneous
  Country: US (occurrence: US)
  Receive Date: 20170614
  Receipt Date: 20170614
  Transmission Date: 20170830
  Serious: Yes (Hospitalization, Other)
  Sender: FDA-Public Use
  Company Number: US-ROCHE-769858

PATIENT
  Age: 51 Year
  Sex: Female

DRUGS (7)
  1. XELODA [Suspect]
     Active Substance: CAPECITABINE
     Indication: BREAST CANCER
     Dosage: 2000 MG DAILY FOR SEVEN DAYS AND SEVEN DAYS OFF.
     Route: 065
  2. TYKERB [Suspect]
     Active Substance: LAPATINIB DITOSYLATE
     Indication: BREAST CANCER
     Dosage: 5 TABLETS DAILY.
     Route: 048
  3. ZOLOFT [Concomitant]
     Active Substance: SERTRALINE HYDROCHLORIDE
     Route: 065
  4. PEPCID AC [Concomitant]
     Active Substance: FAMOTIDINE
     Route: 065
  5. THYROXINE SODIUM [Concomitant]
     Active Substance: LEVOTHYROXINE SODIUM
     Route: 065
  6. CARAFATE [Concomitant]
     Active Substance: SUCRALFATE
     Route: 065
  7. PROTONIX [Concomitant]
     Active Substance: PANTOPRAZOLE SODIUM
     Route: 065

REACTIONS (6)
  - Platelet count decreased [Not Recovered/Not Resolved]
  - Diarrhoea [Not Recovered/Not Resolved]
  - Rectal haemorrhage [Not Recovered/Not Resolved]
  - Epistaxis [Not Recovered/Not Resolved]
  - Gastrointestinal haemorrhage [Unknown]
  - Pancytopenia [Unknown]

NARRATIVE: CASE EVENT DATE: 20101118
